FAERS Safety Report 11067735 (Version 1)
Quarter: 2015Q2

REPORT INFORMATION
  Report Type: Spontaneous
  Country: CA (occurrence: CA)
  Receive Date: 20150427
  Receipt Date: 20150427
  Transmission Date: 20150821
  Serious: Yes (Other)
  Sender: FDA-Public Use
  Company Number: CA-AMGEN-CANSP2015039372

PATIENT
  Age: 57 Year
  Sex: Female

DRUGS (1)
  1. ENBREL [Suspect]
     Active Substance: ETANERCEPT
     Indication: RHEUMATOID ARTHRITIS
     Dosage: UNK
     Route: 065
     Dates: start: 2012

REACTIONS (7)
  - Scar [Unknown]
  - Wound [Unknown]
  - Skin ulcer [Unknown]
  - Abdominal pain upper [Unknown]
  - Sinusitis [Unknown]
  - Bladder cancer [Unknown]
  - Infection [Unknown]
